FAERS Safety Report 10205126 (Version 1)
Quarter: 2014Q2

REPORT INFORMATION
  Report Type: Report from Study
  Country: US (occurrence: US)
  Receive Date: 20140529
  Receipt Date: 20140529
  Transmission Date: 20141212
  Serious: Yes (Hospitalization, Other)
  Sender: FDA-Public Use
  Company Number: PHEH2014US010813

PATIENT
  Age: 17 Year
  Sex: Male
  Weight: 77 kg

DRUGS (7)
  1. TOBI [Suspect]
     Indication: CYSTIC FIBROSIS
     Dosage: 1 DF, BID
     Route: 055
     Dates: start: 2012
  2. PULMOZYME [Concomitant]
     Dosage: UNK
  3. CREON [Concomitant]
     Dosage: UNK
  4. AZITHROMYCIN [Concomitant]
     Dosage: UNK
  5. PRILOSEC [Concomitant]
     Dosage: UNK
  6. VENTOLIN [Concomitant]
     Dosage: UNK
  7. AQUADEKS [Concomitant]
     Dosage: UNK

REACTIONS (1)
  - Pseudomonas infection [Recovering/Resolving]
